FAERS Safety Report 4561443-9 (Version None)
Quarter: 2005Q1

REPORT INFORMATION
  Report Type: 
  Country: None (occurrence: None)
  Receive Date: 20050121
  Receipt Date: 20041216
  Transmission Date: 20050727
  Serious: No
  Sender: FDA-Public Use
  Company Number: USA041286314

PATIENT
  Age: 52 Year
  Sex: Female

DRUGS (3)
  1. ZYPREXA [Suspect]
     Indication: BIPOLAR DISORDER
     Dosage: 5 MG
     Dates: start: 20041216
  2. FLAXSEED [Concomitant]
  3. PERCOCET [Concomitant]

REACTIONS (2)
  - OEDEMA PERIPHERAL [None]
  - PETECHIAE [None]
